FAERS Safety Report 24033513 (Version 2)
Quarter: 2024Q3

REPORT INFORMATION
  Report Type: Spontaneous
  Country: US (occurrence: US)
  Receive Date: 20240701
  Receipt Date: 20240705
  Transmission Date: 20241016
  Serious: No
  Sender: SANDOZ
  Company Number: US-SANDOZ-SDZ2024US061539

PATIENT
  Weight: 145.45 kg

DRUGS (1)
  1. METRONIDAZOLE [Suspect]
     Active Substance: METRONIDAZOLE
     Indication: Hidradenitis
     Dosage: 0.75 %, BID
     Route: 061

REACTIONS (2)
  - Skin lesion [Recovering/Resolving]
  - Skin weeping [Recovering/Resolving]
